FAERS Safety Report 16598470 (Version 1)
Quarter: 2019Q3

REPORT INFORMATION
  Report Type: Report from Study
  Country: DE (occurrence: DE)
  Receive Date: 20190719
  Receipt Date: 20190719
  Transmission Date: 20191004
  Serious: Yes (Death, Life-Threatening)
  Sender: FDA-Public Use
  Company Number: DE-RECRO GAINESVILLE LLC-REPH-2019-000122

PATIENT
  Age: 67 Year
  Sex: Male

DRUGS (6)
  1. FLECAINIDE [Suspect]
     Active Substance: FLECAINIDE
     Indication: ATRIAL FIBRILLATION
     Dosage: 200 MILLIGRAM, QD
  2. FLECAINIDE [Suspect]
     Active Substance: FLECAINIDE
     Indication: ATRIAL FLUTTER
     Dosage: 150 MILLIGRAM, QD FOR 10 DAYS
  3. VERAPAMIL HYDROCHLORIDE SUSTAINED RELEASE [Suspect]
     Active Substance: VERAPAMIL HYDROCHLORIDE
     Indication: ATRIAL FIBRILLATION
  4. DIGITALIS [Concomitant]
     Active Substance: DIGITALIS
     Indication: ATRIAL FIBRILLATION
  5. VERAPAMIL HYDROCHLORIDE SUSTAINED RELEASE [Suspect]
     Active Substance: VERAPAMIL HYDROCHLORIDE
     Indication: ATRIAL FLUTTER
     Dosage: 120 MILLIGRAM, TID FOR 3 WEEKS
  6. DIGITALIS [Concomitant]
     Active Substance: DIGITALIS
     Indication: ATRIAL FLUTTER
     Dosage: UNK DOSE AND FREQUENCY FOR 3 WEEKS

REACTIONS (5)
  - Off label use [Unknown]
  - Drug interaction [Fatal]
  - Syncope [Unknown]
  - Cardiac arrest [Fatal]
  - Bradycardia [Unknown]
